FAERS Safety Report 21641088 (Version 3)
Quarter: 2022Q4

REPORT INFORMATION
  Report Type: Spontaneous
  Country: US (occurrence: US)
  Receive Date: 20221125
  Receipt Date: 20221219
  Transmission Date: 20230112
  Serious: No
  Sender: FDA-Public Use
  Company Number: US-002147023-NVSC2022US265091

PATIENT
  Age: 54 Year
  Sex: Female

DRUGS (2)
  1. COMBIPATCH [Suspect]
     Active Substance: ESTRADIOL\NORETHINDRONE ACETATE
     Indication: Menopausal symptoms
     Dosage: UNK
     Route: 062
     Dates: start: 202210, end: 202210
  2. COMBIPATCH [Suspect]
     Active Substance: ESTRADIOL\NORETHINDRONE ACETATE
     Dosage: UNK
     Route: 062
     Dates: start: 20221024

REACTIONS (7)
  - Myalgia [Recovered/Resolved]
  - Application site reaction [Unknown]
  - Product adhesion issue [Not Recovered/Not Resolved]
  - Product physical issue [Not Recovered/Not Resolved]
  - Product storage error [Recovered/Resolved]
  - Off label use [Unknown]
  - Drug ineffective for unapproved indication [Recovered/Resolved]

NARRATIVE: CASE EVENT DATE: 20221001
